FAERS Safety Report 7527781-2 (Version None)
Quarter: 2011Q2

REPORT INFORMATION
  Report Type: 
  Country: None (occurrence: None)
  Receive Date: 20110527
  Receipt Date: 20110512
  Transmission Date: 20111010
  Serious: Yes (Hospitalization)
  Sender: FDA-Public Use
  Company Number: DSJ-2011-09300

PATIENT
  Age: 6 Decade
  Sex: Female

DRUGS (4)
  1. INDAPAMIDE [Concomitant]
  2. BENICAR [Suspect]
     Indication: HYPERTENSION
     Dosage: 20 MG (20 MG,1 IN 1 D),PER ORAL
     Route: 048
     Dates: start: 20090101
  3. CHEMOTHERAPY [Suspect]
     Indication: BREAST NEOPLASM
     Dosage: PER ORAL
     Route: 048
     Dates: start: 20110201
  4. LEVOTHYROXINE SODIUM (LEVOTHYROXINE SODIUM) (LEVOTHYROXINE SODIUM) [Concomitant]

REACTIONS (2)
  - BREAST NEOPLASM [None]
  - NAUSEA [None]
